FAERS Safety Report 5287226-2 (Version None)
Quarter: 2007Q1

REPORT INFORMATION
  Report Type: 
  Country: None (occurrence: None)
  Receive Date: 20070116
  Receipt Date: 20061011
  Transmission Date: 20070707
  Serious: No
  Sender: FDA-Public Use
  Company Number: 2006SP003621

PATIENT
  Age: 51 Year
  Sex: Female
  Weight: 68.9467 kg

DRUGS (7)
  1. LUNESTA [Suspect]
     Indication: INSOMNIA
     Dosage: 2 MG;HS;ORAL
     Route: 048
     Dates: start: 20060928
  2. LUNESTA [Suspect]
     Indication: PAIN
     Dosage: 2 MG;HS;ORAL
     Route: 048
     Dates: start: 20060928
  3. PREVACID [Concomitant]
  4. PRAVACHOL [Concomitant]
  5. CALCIUM [Concomitant]
  6. ALEVE [Concomitant]
  7. AMBIEN [Concomitant]

REACTIONS (2)
  - MIDDLE INSOMNIA [None]
  - SOMNOLENCE [None]
